FAERS Safety Report 17273596 (Version 1)
Quarter: 2020Q1

REPORT INFORMATION
  Report Type: Spontaneous
  Country: IE (occurrence: IE)
  Receive Date: 20200115
  Receipt Date: 20200115
  Transmission Date: 20200409
  Serious: Yes (Other)
  Sender: FDA-Public Use
  Company Number: IE-ARRAY-2019-07011

PATIENT

DRUGS (3)
  1. BRAFTOVI [Suspect]
     Active Substance: ENCORAFENIB
     Dosage: 300 MG
     Route: 048
     Dates: start: 20191211
  2. MEKTOVI [Suspect]
     Active Substance: BINIMETINIB
     Indication: MALIGNANT MELANOMA
     Dosage: 45 MG, QD (1/DAY), 3 DOSES
     Route: 048
     Dates: start: 20191126, end: 20191127
  3. BRAFTOVI [Suspect]
     Active Substance: ENCORAFENIB
     Indication: MALIGNANT MELANOMA
     Dosage: 450 MG, QD (1/DAY), 3 DOSES
     Route: 048
     Dates: start: 20191126, end: 20191127

REACTIONS (1)
  - Serous retinopathy [Recovered/Resolved]

NARRATIVE: CASE EVENT DATE: 20191126
